FAERS Safety Report 6517232-9 (Version None)
Quarter: 2009Q4

REPORT INFORMATION
  Report Type: 
  Country: None (occurrence: None)
  Receive Date: 20091217
  Receipt Date: 20090820
  Transmission Date: 20100525
  Serious: Yes (Hospitalization)
  Sender: FDA-Public Use
  Company Number: 652174

PATIENT
  Age: 55 Year
  Sex: Male

DRUGS (10)
  1. TAMIFLU [Suspect]
     Indication: H1N1 INFLUENZA
     Dosage: 75 MG 2 PER DAY ORAL
     Route: 048
     Dates: start: 20090714, end: 20090814
  2. VANCOMYCIN [Concomitant]
  3. CEFEPIME [Concomitant]
  4. VORICONAZOLE [Concomitant]
  5. ACYCLOVIR [Concomitant]
  6. COTRIM [Concomitant]
  7. CYCLOPHOSPHAMIDE [Concomitant]
  8. DEXAMETHASONE TAB [Concomitant]
  9. ZANAMIVIR (ZANAMIVIR) [Concomitant]
  10. ANTITHYMOCYTE GLOBULIN (ANTITHYMOCYTE IMMUNOGLOBULIN) [Concomitant]

REACTIONS (3)
  - DRUG INEFFECTIVE [None]
  - PATHOGEN RESISTANCE [None]
  - PNEUMONIA VIRAL [None]
